FAERS Safety Report 25936929 (Version 2)
Quarter: 2025Q4

REPORT INFORMATION
  Report Type: Spontaneous
  Country: US (occurrence: US)
  Receive Date: 20251017
  Receipt Date: 20251208
  Transmission Date: 20260118
  Serious: Yes (Other)
  Sender: CHURCH & DWIGHT
  Company Number: US-CHURCH AND DWIGHT CO., INC-2025-CDW-01613

PATIENT
  Age: 51 Year
  Sex: Female
  Weight: 80.73 kg

DRUGS (15)
  1. COSMETICS [Suspect]
     Active Substance: COSMETICS
     Indication: Product used for unknown indication
     Dosage: UNK
     Route: 061
     Dates: start: 202505
  2. SENEXON-S [Concomitant]
     Active Substance: DOCUSATE SODIUM\SENNOSIDES A AND B
     Indication: Constipation
     Dosage: 5 8.6 MG-50 MG TABLET-TAKE 2 TABLETS EVERY DAY BY MOUTH AS NEEDED
     Route: 048
     Dates: start: 20240420
  3. HYDROXYZINE HYDROCHLORIDE [Concomitant]
     Active Substance: HYDROXYZINE HYDROCHLORIDE
     Indication: Product used for unknown indication
     Dosage: 25 MG TABLET TAKE 1 TABLET (25 MG) BY MOUTH EVERY 6 (SIX) HOURS FOR 3 DAY.
     Route: 065
     Dates: start: 20241020
  4. DEXILANT [Concomitant]
     Active Substance: DEXLANSOPRAZOLE
     Indication: Product used for unknown indication
     Dosage: UNK
     Route: 048
     Dates: start: 20241023
  5. HYDROCHLOROTHIAZIDE\LOSARTAN [Concomitant]
     Active Substance: HYDROCHLOROTHIAZIDE\LOSARTAN
     Indication: Product used for unknown indication
     Dosage: 1 TABLET BY MOUTH EVERY DAY
     Route: 048
     Dates: start: 20241023
  6. MAGNESIUM [Concomitant]
     Active Substance: MAGNESIUM
     Indication: Product used for unknown indication
     Dosage: 100 MG (AS GLYCINATE) TABLET TAKE 1 TABLET(S) TWICE A DAY
     Route: 048
     Dates: start: 20251206
  7. TOPIRAMATE [Concomitant]
     Active Substance: TOPIRAMATE
     Indication: Product used for unknown indication
     Dosage: 50 MG TABLET TAKE 1 TABLET BY MOUTH EVERY DAY.
     Route: 048
     Dates: start: 20241212
  8. PANTOPRAZOLE [Concomitant]
     Active Substance: PANTOPRAZOLE
     Indication: Product used for unknown indication
     Dosage: 40 MG TABLET, DELAYED RELEASE TAKE 1 TABLET TWICE A DAY
     Route: 048
     Dates: start: 20250214
  9. ONDANSETRON [Concomitant]
     Active Substance: ONDANSETRON
     Indication: Product used for unknown indication
     Dosage: 4 MG DISINTEGRATING TABLET PLACE 1 TABLET 3 TIMES A DAY
     Route: 048
     Dates: start: 20250214
  10. SYNTHROID [Concomitant]
     Active Substance: LEVOTHYROXINE SODIUM
     Indication: Product used for unknown indication
     Dosage: 75 MCG TABLET TAKE 1 TABLET BY MOUTH EVERY DAY
     Route: 048
     Dates: start: 20250217
  11. FLUTICASONE PROPIONATE [Concomitant]
     Active Substance: FLUTICASONE PROPIONATE
     Indication: Product used for unknown indication
     Dosage: 50 MCG/ACTUATION NASAL SPRAY, SUSPENSION USE 1 SPRAY NASALLY EVERY DAY AS DIRECTED
     Route: 045
     Dates: start: 20250217
  12. OMEPRAZOLE [Concomitant]
     Active Substance: OMEPRAZOLE
     Indication: Product used for unknown indication
     Dosage: 20 MG CAPSULE, DELAYED RELEASE TAKES 1 CAPSULE BY MOUTH TWICE A DAY
     Route: 048
     Dates: start: 20250418
  13. TIZANIDINE [Concomitant]
     Active Substance: TIZANIDINE
     Indication: Back pain
     Dosage: 2 MG CAPSULE TAKE ONE CAPSULE BY MOUTH EVERY 8 HOURS AS NEEDED
     Route: 048
     Dates: start: 20250420
  14. CLOBETASOL PROPIONATE [Concomitant]
     Active Substance: CLOBETASOL PROPIONATE
     Indication: Product used for unknown indication
     Dosage: 0.05 % TOPICAL OINTMENT APPLY THIN COAT TO AFFECTED AREA TWICE
     Route: 061
     Dates: start: 20250501
  15. DICLOFENAC [Concomitant]
     Active Substance: DICLOFENAC
     Indication: Product used for unknown indication
     Dosage: 3 % TOPICAL GEL (APPLY TO 6 G TO KNEE AREAS)
     Route: 061

REACTIONS (11)
  - Burns second degree [Recovering/Resolving]
  - Application site pain [Recovering/Resolving]
  - Rash macular [Recovering/Resolving]
  - Application site injury [Recovering/Resolving]
  - Application site wound [Recovering/Resolving]
  - Application site irritation [Recovering/Resolving]
  - Application site scar [Recovering/Resolving]
  - Product use issue [Unknown]
  - Application site haemorrhage [Recovering/Resolving]
  - Application site erythema [Recovering/Resolving]
  - Application site erosion [Recovering/Resolving]

NARRATIVE: CASE EVENT DATE: 20250501
